FAERS Safety Report 5525427-6 (Version None)
Quarter: 2007Q4

REPORT INFORMATION
  Report Type: 
  Country: None (occurrence: None)
  Receive Date: 20071120
  Receipt Date: 20071114
  Transmission Date: 20080405
  Serious: Yes (Other)
  Sender: FDA-Public Use
  Company Number: 62614

PATIENT
  Age: 3 Year
  Sex: Female

DRUGS (1)
  1. LORATADINE [Suspect]
     Dosage: 5-6 TABLETS ALL AT ONCE/ORAL
     Route: 048
     Dates: start: 20071008, end: 20071008

REACTIONS (3)
  - FEELING ABNORMAL [None]
  - PSYCHOMOTOR HYPERACTIVITY [None]
  - SOMNOLENCE [None]
